FAERS Safety Report 25462030 (Version 9)
Quarter: 2025Q3

REPORT INFORMATION
  Report Type: Spontaneous
  Country: US (occurrence: US)
  Receive Date: 20250620
  Receipt Date: 20250922
  Transmission Date: 20251021
  Serious: No
  Sender: SANOFI AVENTIS
  Company Number: US-SANOFI-02562293

PATIENT
  Age: 70 Year
  Sex: Female

DRUGS (4)
  1. DUPIXENT [Suspect]
     Active Substance: DUPILUMAB
     Indication: Dermatitis atopic
     Dosage: 300 MG, QOW
     Route: 058
     Dates: start: 202506
  2. DUPIXENT [Suspect]
     Active Substance: DUPILUMAB
     Indication: Eczema
     Dosage: 300 MG, QOW
     Route: 058
     Dates: start: 20250707, end: 202508
  3. MELOXICAM [Suspect]
     Active Substance: MELOXICAM
     Indication: Arthralgia
  4. CELECOXIB [Suspect]
     Active Substance: CELECOXIB
     Indication: Arthralgia

REACTIONS (13)
  - Decreased appetite [Unknown]
  - Weight decreased [Unknown]
  - Flank pain [Recovered/Resolved]
  - Alopecia [Unknown]
  - Condition aggravated [Unknown]
  - Gait disturbance [Unknown]
  - Contusion [Unknown]
  - Abdominal discomfort [Unknown]
  - Headache [Recovered/Resolved]
  - Arthralgia [Recovering/Resolving]
  - Injection site pain [Unknown]
  - Product storage error [Unknown]
  - Incorrect dose administered [Unknown]

NARRATIVE: CASE EVENT DATE: 20250101
